FAERS Safety Report 7910128-7 (Version None)
Quarter: 2011Q4

REPORT INFORMATION
  Report Type: 
  Country: None (occurrence: None)
  Receive Date: 20111111
  Receipt Date: 20111020
  Transmission Date: 20120403
  Serious: Yes (Hospitalization)
  Sender: FDA-Public Use
  Company Number: GB-ROCHE-790708

PATIENT
  Sex: Female
  Weight: 12.7 kg

DRUGS (22)
  1. GENTAMICIN [Concomitant]
     Route: 042
     Dates: start: 20110817, end: 20110824
  2. DACTINOMYCIN [Suspect]
     Indication: SARCOMA METASTATIC
     Dosage: FREQUENCY: DAY 1  OF CYCLE DOSAGE: 1.5 MG/M2   LAST DOSE PRIOR TO SAE WAS TAKEN ON 30 AUG 2011
     Route: 042
  3. LEVOMEPROMAZINE [Concomitant]
     Route: 042
  4. AVASTIN [Suspect]
     Indication: SARCOMA METASTATIC
     Dosage: FREQUENCY: DAY 1, LAST DOSE PRIOR TOSAE: 30 AUGUST 2011
     Route: 042
  5. MESNA [Suspect]
     Dosage: FREQUENCY: OD,  DOSAGE FORM: 3600 MG/M2
     Route: 042
  6. MOVIPREP [Concomitant]
     Dosage: TDD: 2 SACHETS
  7. EMOLLIENT CREAM (UNK INGREDIENTS) [Concomitant]
     Dosage: REPORTED AS: 50 AND 50 EMOLLIENT CREAM.
     Dates: start: 20111012
  8. DOXORUBICIN HCL [Suspect]
     Indication: SARCOMA METASTATIC
     Dosage: FREQUENCY: DAYS 1 AND 2    DOSAGE: 30 MG/M2   LAST DOSE PRIOR TO SAE WAS TAKEN ON 31 AUG 2011
     Route: 042
  9. ACETAMINOPHEN [Concomitant]
     Route: 048
  10. ONDANSETRON [Concomitant]
     Route: 048
     Dates: start: 20110901, end: 20110907
  11. MOVIPREP [Concomitant]
     Dosage: TDD: 1 SACHETS
     Dates: start: 20110901, end: 20110907
  12. DACTINOMYCIN [Suspect]
     Dosage: DATE OF LAST DOSE PRIOR TO ONSET OF SAE: 11 OCT 2011
     Route: 042
  13. FLUCONAZOLE [Concomitant]
     Route: 042
  14. COTRIM [Concomitant]
     Route: 048
  15. IFOSFAMIDE [Suspect]
     Indication: SARCOMA METASTATIC
     Dosage: FREQUENCY: DAYS 1 AND 2.   DOSAGE FORM:3G/M2   LAST DOSE PRIOR TO SAE WAS TAKEN ON 31 AUG 2011
     Route: 042
  16. VINCRISTINE [Suspect]
     Indication: SARCOMA METASTATIC
     Dosage: DOSAGE CUMM: 1.5 MG/M2, FREQUENCY DAYS 1,8 AND 15 OF CYCLELAST DOSEPRIOR TO SAE: 30 AUG 2011
     Route: 042
  17. MESNA [Suspect]
     Indication: SARCOMA METASTATIC
     Dosage: FREQUENCY: DAYS 1 AND 2  DOSAGE FORM: 3600 MG/M2  LAST DOSE PRIOR TO SAE WAS TAKEN ON 31 AUG 2011
     Route: 042
  18. ONDANSETRON [Concomitant]
     Route: 048
  19. DOCUSATE [Concomitant]
     Route: 048
  20. MORPHINE [Concomitant]
     Dosage: DRUG REPORTED AS MORPHINE SULPHATE
     Route: 048
  21. NEUPOGEN [Concomitant]
     Route: 042
  22. PIPERACILLIN AND TAZOBACTAM [Concomitant]
     Dosage: 1070 QDS
     Route: 042
     Dates: start: 20110817, end: 20110824

REACTIONS (4)
  - EPISTAXIS [None]
  - MUCOSAL INFLAMMATION [None]
  - FEBRILE NEUTROPENIA [None]
  - CANDIDA TEST POSITIVE [None]
